FAERS Safety Report 6081213-2 (Version None)
Quarter: 2009Q1

REPORT INFORMATION
  Report Type: 
  Country: None (occurrence: None)
  Receive Date: 20090213
  Receipt Date: 20090130
  Transmission Date: 20090719
  Serious: Yes (Death, Hospitalization)
  Sender: FDA-Public Use
  Company Number: A-NJ2008-21869

PATIENT
  Age: 80 Year
  Sex: Male

DRUGS (2)
  1. VENTAVIS [Suspect]
     Indication: PULMONARY ARTERIAL HYPERTENSION
     Dosage: RESPIRATORY
     Route: 055
     Dates: start: 20080820, end: 20081209
  2. TRACLEER [Concomitant]

REACTIONS (4)
  - CONDITION AGGRAVATED [None]
  - COR PULMONALE [None]
  - FATIGUE [None]
  - NO THERAPEUTIC RESPONSE [None]
